FAERS Safety Report 7474667-8 (Version None)
Quarter: 2011Q2

REPORT INFORMATION
  Report Type: 
  Country: None (occurrence: None)
  Receive Date: 20110505
  Receipt Date: 20110421
  Transmission Date: 20111010
  Serious: Yes (Other)
  Sender: FDA-Public Use
  Company Number: 031901

PATIENT
  Age: 9 Year
  Sex: Female

DRUGS (7)
  1. PROPOFOL [Concomitant]
  2. LACOSAMIDE [Suspect]
     Indication: STATUS EPILEPTICUS
     Dosage: SEE IMAGE
     Route: 042
  3. PHENOBARBITAL TAB [Concomitant]
  4. DORMICUM /00634101/ [Concomitant]
  5. LEVETIRACETAM [Concomitant]
  6. DIPHENHYDRAMINE HCL [Concomitant]
  7. FENTANYL [Concomitant]

REACTIONS (2)
  - CONVULSION [None]
  - OFF LABEL USE [None]
